FAERS Safety Report 5771457-9 (Version None)
Quarter: 2008Q2

REPORT INFORMATION
  Report Type: 
  Country: None (occurrence: None)
  Receive Date: 20080610
  Receipt Date: 20080521
  Transmission Date: 20081010
  Serious: Yes (Hospitalization)
  Sender: FDA-Public Use
  Company Number: 2008-00004

PATIENT
  Age: 24 Year
  Sex: Female
  Weight: 58.9676 kg

DRUGS (1)
  1. CLEAN + CLEAR SENSITIVE SKIN DEEP CLEANSING ASTRINGENT [Suspect]
     Indication: ACNE
     Dosage: TOPICAL 1X - 3X DAILY
     Route: 061
     Dates: start: 20080516

REACTIONS (3)
  - EYE SWELLING [None]
  - EYELID OEDEMA [None]
  - SWELLING FACE [None]
